APPROVED DRUG PRODUCT: CEPHALEXIN
Active Ingredient: CEPHALEXIN
Strength: EQ 125MG BASE/5ML
Dosage Form/Route: FOR SUSPENSION;ORAL
Application: A062779 | Product #001
Applicant: VITARINE PHARMACEUTICALS INC
Approved: Dec 22, 1987 | RLD: No | RS: No | Type: DISCN